APPROVED DRUG PRODUCT: VERSACLOZ
Active Ingredient: CLOZAPINE
Strength: 50MG/ML
Dosage Form/Route: SUSPENSION;ORAL
Application: N203479 | Product #001
Applicant: DOUGLAS PHARMACEUTICALS AMERICA LTD
Approved: Feb 6, 2013 | RLD: Yes | RS: Yes | Type: RX

PATENTS:
Patent 8057811 | Expires: May 1, 2028